FAERS Safety Report 4292469-0 (Version None)
Quarter: 2004Q1

REPORT INFORMATION
  Report Type: 
  Country: None (occurrence: None)
  Receive Date: 20040126
  Receipt Date: 20031126
  Transmission Date: 20041129
  Serious: No
  Sender: FDA-Public Use
  Company Number: USA030843037

PATIENT
  Age: 85 Year
  Sex: Female
  Weight: 45 kg

DRUGS (8)
  1. FORTEO [Suspect]
     Indication: OSTEOPOROSIS
     Dates: start: 20030715
  2. PROPOXYPHENE HCL [Concomitant]
  3. AMBIEN [Concomitant]
  4. PLAVIX [Concomitant]
  5. BENADRYL [Concomitant]
  6. ZOLOFT [Concomitant]
  7. ATENOLOL [Concomitant]
  8. ALPRAZOLAM [Concomitant]

REACTIONS (5)
  - DYSPHONIA [None]
  - INCREASED UPPER AIRWAY SECRETION [None]
  - INJECTION SITE HAEMORRHAGE [None]
  - MULTIPLE ALLERGIES [None]
  - THROAT TIGHTNESS [None]
